FAERS Safety Report 5634336-3 (Version None)
Quarter: 2008Q1

REPORT INFORMATION
  Report Type: 
  Country: None (occurrence: None)
  Receive Date: 20080131
  Receipt Date: 20070209
  Transmission Date: 20080703
  Serious: Yes (Other)
  Sender: FDA-Public Use
  Company Number: 2007-BP-01286BP

PATIENT
  Age: 64 Year
  Sex: Female
  Weight: 72 kg

DRUGS (7)
  1. SPIRIVA [Suspect]
     Indication: CHRONIC OBSTRUCTIVE PULMONARY DISEASE
     Dosage: 18 MCG (18 MCG, QD), IH
     Route: 025
     Dates: start: 20061205, end: 20070120
  2. UNSPECIFIED ACE INHIBITOR (ACE INHIBITOR NOS) [Concomitant]
  3. HYDROCHLOROTHIAZIDE [Concomitant]
  4. ACTONEL [Concomitant]
  5. ENALAPRIL MALEATE [Concomitant]
  6. QVAR [Concomitant]
  7. ALBUTEROL [Concomitant]

REACTIONS (1)
  - ANGIOEDEMA [None]
